FAERS Safety Report 9394733 (Version 1)
Quarter: 2013Q3

REPORT INFORMATION
  Report Type: Spontaneous
  Country: US (occurrence: None)
  Receive Date: 20130709
  Receipt Date: 20130709
  Transmission Date: 20140515
  Serious: Yes (Life-Threatening)
  Sender: FDA-Public Use
  Company Number: None

PATIENT
  Age: 16 Year
  Sex: Female
  Weight: 48.54 kg

DRUGS (1)
  1. ZOLOFT [Suspect]
     Indication: ANXIETY
     Dosage: 30 ONCE DAILY
     Route: 048
     Dates: start: 20130403, end: 20130510

REACTIONS (5)
  - Mood swings [None]
  - Bipolar disorder [None]
  - Suicidal ideation [None]
  - Disturbance in attention [None]
  - Mental impairment [None]
